FAERS Safety Report 11208181 (Version 1)
Quarter: 2015Q2

REPORT INFORMATION
  Report Type: Report from Study
  Country: PL (occurrence: PL)
  Receive Date: 20150622
  Receipt Date: 20150622
  Transmission Date: 20150821
  Serious: Yes (Hospitalization)
  Sender: FDA-Public Use
  Company Number: PL-ASTRAZENECA-2015SE57429

PATIENT
  Age: 26297 Day
  Sex: Male

DRUGS (11)
  1. HUMULIN N [Concomitant]
     Active Substance: INSULIN HUMAN
     Indication: DIABETES MELLITUS
     Dosage: 24 IU
     Route: 058
     Dates: start: 20150504
  2. DAPAGLIFLOZIN [Suspect]
     Active Substance: DAPAGLIFLOZIN
     Indication: TYPE 2 DIABETES MELLITUS
     Route: 048
     Dates: start: 20140520, end: 20150423
  3. AXTIL [Concomitant]
     Indication: HYPERTENSION
     Route: 048
  4. BETO 100 [Concomitant]
     Indication: HYPERTENSION
     Route: 048
  5. AMLOPIN [Concomitant]
     Active Substance: AMLODIPINE BESYLATE
     Indication: HYPERTENSION
     Route: 048
  6. ACARD [Concomitant]
     Active Substance: ASPIRIN
     Indication: MYOCARDIAL INFARCTION
     Route: 048
     Dates: start: 20150426
  7. ATORIS [Concomitant]
     Active Substance: ATORVASTATIN CALCIUM
     Indication: DIABETES MELLITUS
     Dosage: 20 MG
     Route: 048
     Dates: start: 20111101
  8. HUMULIN R [Concomitant]
     Active Substance: INSULIN HUMAN
     Indication: DIABETES MELLITUS
     Dosage: 50 IU
     Route: 058
     Dates: end: 20150503
  9. HUMULIN N [Concomitant]
     Active Substance: INSULIN HUMAN
     Indication: DIABETES MELLITUS
     Dosage: 20 IU
     Route: 058
     Dates: end: 20150503
  10. FORMETIC [Concomitant]
     Indication: DIABETES MELLITUS
     Dosage: 2550 MG
     Route: 048
     Dates: start: 20150426
  11. DAPAGLIFLOZIN [Suspect]
     Active Substance: DAPAGLIFLOZIN
     Indication: TYPE 2 DIABETES MELLITUS
     Route: 048
     Dates: start: 20150609

REACTIONS (2)
  - Urinary retention [Recovered/Resolved]
  - Urinary tract infection [Recovered/Resolved]

NARRATIVE: CASE EVENT DATE: 20150423
